FAERS Safety Report 5427096-2 (Version None)
Quarter: 2007Q3

REPORT INFORMATION
  Report Type: 
  Country: None (occurrence: None)
  Receive Date: 20070823
  Receipt Date: 20070823
  Transmission Date: 20080115
  Serious: Yes (Other)
  Sender: FDA-Public Use
  Company Number: None

PATIENT
  Age: 45 Year
  Sex: Female

DRUGS (2)
  1. ASPIRIN [Suspect]
  2. PLAVIX [Suspect]

REACTIONS (5)
  - ANAEMIA [None]
  - ENDOMETRIAL CANCER [None]
  - ENDOMETRIAL HYPERPLASIA [None]
  - EPISTAXIS [None]
  - VAGINAL HAEMORRHAGE [None]
